FAERS Safety Report 6895107-3 (Version None)
Quarter: 2010Q3

REPORT INFORMATION
  Report Type: 
  Country: None (occurrence: None)
  Receive Date: 20100802
  Receipt Date: 20100722
  Transmission Date: 20110219
  Serious: Yes (Other)
  Sender: FDA-Public Use
  Company Number: US-JNJFOC-20100708932

PATIENT
  Age: 22 Year
  Sex: Female

DRUGS (33)
  1. RISPERIDONE [Suspect]
     Indication: PRODUCT USED FOR UNKNOWN INDICATION
     Route: 065
  2. PHENYTOIN [Suspect]
     Indication: PRODUCT USED FOR UNKNOWN INDICATION
     Route: 048
  3. PHENYTOIN [Suspect]
     Dosage: ONCE EVERY MORNING
     Route: 048
  4. ZIDOVUDINE [Interacting]
     Indication: PRODUCT USED FOR UNKNOWN INDICATION
     Route: 048
  5. AZITHROMYCIN [Interacting]
     Indication: PRODUCT USED FOR UNKNOWN INDICATION
     Dosage: ONCE EVERY FRIDAY
     Route: 048
  6. DRONABINOL [Interacting]
     Indication: PRODUCT USED FOR UNKNOWN INDICATION
     Route: 048
  7. PROCHLORPERAZINE [Interacting]
     Indication: PRODUCT USED FOR UNKNOWN INDICATION
     Route: 048
  8. SULFAMETHOXAZOLE [Interacting]
     Indication: PRODUCT USED FOR UNKNOWN INDICATION
     Route: 042
  9. TRIMETHOPRIM [Interacting]
     Indication: PRODUCT USED FOR UNKNOWN INDICATION
     Route: 042
  10. ACETAMINOPHEN [Concomitant]
     Route: 048
  11. HALOPERIDOL [Concomitant]
     Route: 048
  12. LOPERAMIDE [Concomitant]
     Route: 048
  13. UNKNOWN MEDICATION [Concomitant]
     Route: 048
  14. NITAZOXANIDE [Concomitant]
     Route: 048
  15. LOPINAVIR [Concomitant]
     Route: 048
  16. RITONAVIR [Concomitant]
     Route: 048
  17. LAMIVUDINE [Concomitant]
     Route: 048
  18. MAGNESIUM SULFATE [Concomitant]
     Route: 042
  19. LORAZEPAM [Concomitant]
     Route: 048
  20. ONDANSETRON [Concomitant]
     Route: 042
  21. PROMETHAZINE [Concomitant]
     Route: 042
  22. METOCLOPRAMIDE [Concomitant]
     Route: 042
  23. OXYCODONE [Concomitant]
     Dosage: 5 MG PO/SL O3-4H PRN PAIN (NO USE)
     Route: 048
  24. ESOMEPRAZOLE MAGNESIUM [Concomitant]
     Indication: PRODUCT USED FOR UNKNOWN INDICATION
     Route: 048
  25. FLUCONAZOLE [Concomitant]
     Indication: PRODUCT USED FOR UNKNOWN INDICATION
     Route: 048
  26. MEGESTROL [Concomitant]
     Route: 048
  27. DIAZEPAM [Concomitant]
     Indication: CONVULSION
     Dosage: PROLONGED RELEASE
     Route: 048
  28. DICYCLOMINE [Concomitant]
     Route: 048
  29. POTASSIUM CHLORIDE [Concomitant]
     Route: 048
  30. PROCHLORPERAZINE [Concomitant]
     Dosage: Q6H PRN N/V (4DOSES/DAY)
     Route: 048
  31. OMEPRAZOLE [Concomitant]
     Route: 048
  32. POTASSIUM PHOSPHATES [Concomitant]
     Route: 048
  33. NYSTATIN [Concomitant]
     Route: 048

REACTIONS (2)
  - CONVULSION [None]
  - DRUG INTERACTION [None]
